FAERS Safety Report 8342022 (Version 2)
Quarter: 2013Q1

REPORT INFORMATION
  Report Type: Spontaneous
  Country: US (occurrence: US)
  Receive Date: 20120118
  Receipt Date: 20130304
  Transmission Date: 20140127
  Serious: Yes (Other)
  Sender: FDA-Public Use
  Company Number: US-GLAXOSMITHKLINE-A0961415A

PATIENT
  Age: 50 Year
  Sex: Male

DRUGS (4)
  1. FLONASE [Suspect]
     Indication: RHINITIS ALLERGIC
     Dosage: 2SPR TWICE PER DAY
     Route: 045
     Dates: end: 201011
  2. ZYRTEC [Concomitant]
  3. OMEPRAZOLE [Concomitant]
  4. ASMANEX [Concomitant]

REACTIONS (2)
  - Nasal septum perforation [Not Recovered/Not Resolved]
  - Nasal septum ulceration [Unknown]
